FAERS Safety Report 14776333 (Version 1)
Quarter: 2018Q2

REPORT INFORMATION
  Report Type: Report from Study
  Country: DE (occurrence: DE)
  Receive Date: 20180418
  Receipt Date: 20180418
  Transmission Date: 20180711
  Serious: Yes (Hospitalization, Other)
  Sender: FDA-Public Use
  Company Number: DE-SHIRE-DE201813971

PATIENT

DRUGS (2)
  1. ADVATE [Suspect]
     Active Substance: ANTIHEMOPHILIC FACTOR, HUMAN RECOMBINANT
     Indication: FACTOR VIII DEFICIENCY
     Dosage: 750 IU,EVERY 2 DAYS
     Route: 040
     Dates: start: 201706
  2. ADVATE [Suspect]
     Active Substance: ANTIHEMOPHILIC FACTOR, HUMAN RECOMBINANT
     Indication: PROPHYLAXIS

REACTIONS (4)
  - Haematoma [Not Recovered/Not Resolved]
  - Factor VIII inhibition [Unknown]
  - Haemarthrosis [Not Recovered/Not Resolved]
  - Breast haemorrhage [Not Recovered/Not Resolved]

NARRATIVE: CASE EVENT DATE: 20180404
